FAERS Safety Report 7994445-0 (Version None)
Quarter: 2011Q4

REPORT INFORMATION
  Report Type: 
  Country: None (occurrence: None)
  Receive Date: 20111220
  Receipt Date: 20111010
  Transmission Date: 20120403
  Serious: No
  Sender: FDA-Public Use
  Company Number: US-GLAXOSMITHKLINE-A0948470A

PATIENT
  Age: 52 Year
  Sex: Female

DRUGS (9)
  1. DILANTIN [Concomitant]
  2. MYSOLINE [Concomitant]
  3. IMITREX [Concomitant]
  4. KEPPRA XR [Concomitant]
  5. LAMICTAL [Suspect]
     Indication: CONVULSION
     Dosage: 200MG THREE TIMES PER DAY
     Route: 048
     Dates: start: 20110801
  6. INDERAL [Concomitant]
  7. ZANAFLEX [Concomitant]
  8. ELAVIL [Concomitant]
  9. UNKNOWN MEDICATION [Concomitant]

REACTIONS (1)
  - NAUSEA [None]
